FAERS Safety Report 8524425-8 (Version None)
Quarter: 2012Q3

REPORT INFORMATION
  Report Type: 
  Country: None (occurrence: None)
  Receive Date: 20120720
  Receipt Date: 20120718
  Transmission Date: 20120928
  Serious: Yes (Hospitalization, Disabling, Other)
  Sender: FDA-Public Use
  Company Number: NZ-B.I. PHARMACEUTICALS,INC./RIDGEFIELD-2012-AU-01179AU

PATIENT
  Sex: Female
  Weight: 66 kg

DRUGS (6)
  1. AMITRIPTYLINE HCL [Concomitant]
     Dosage: 10 MG
     Dates: start: 20070101
  2. SOTALOL HYDROCHLORIDE [Concomitant]
     Dosage: 160 MG
     Dates: start: 20000101
  3. DIGOXIN [Concomitant]
     Dosage: 62.5 MCG
     Dates: start: 20000101
  4. PRADAXA [Suspect]
     Indication: ATRIAL FIBRILLATION
     Dosage: 300 MG
     Dates: start: 20110707, end: 20120601
  5. VERAPAMIL CR [Concomitant]
     Dosage: 240 MG
     Dates: start: 20000101
  6. ATORVASTATIN [Concomitant]
     Dosage: 80 MG
     Dates: start: 20000101

REACTIONS (12)
  - TRANSIENT ISCHAEMIC ATTACK [None]
  - HEADACHE [None]
  - HEMIPARESIS [None]
  - GAIT DISTURBANCE [None]
  - DYSARTHRIA [None]
  - VIITH NERVE PARALYSIS [None]
  - SENSORY LOSS [None]
  - DYSPHAGIA [None]
  - FEELING HOT [None]
  - HEMIANOPIA HOMONYMOUS [None]
  - CEREBRAL INFARCTION [None]
  - NYSTAGMUS [None]
